FAERS Safety Report 6121844-4 (Version None)
Quarter: 2009Q1

REPORT INFORMATION
  Report Type: 
  Country: None (occurrence: None)
  Receive Date: 20090317
  Receipt Date: 20090302
  Transmission Date: 20090719
  Serious: Yes (Other)
  Sender: FDA-Public Use
  Company Number: KW-GENENTECH-279027

PATIENT
  Age: 19 Year
  Sex: Male

DRUGS (1)
  1. MABTHERA [Suspect]
     Indication: THROMBOCYTOPENIC PURPURA
     Dosage: 375 MG/M2, 1/WEEK
     Route: 065

REACTIONS (1)
  - GRAND MAL CONVULSION [None]
